FAERS Safety Report 12899270 (Version 1)
Quarter: 2016Q4

REPORT INFORMATION
  Report Type: Spontaneous
  Country: PT (occurrence: PT)
  Receive Date: 20161101
  Receipt Date: 20161101
  Transmission Date: 20170207
  Serious: Yes (Other)
  Sender: FDA-Public Use
  Company Number: PT-AUROBINDO-AUR-APL-2016-13340

PATIENT

DRUGS (1)
  1. SERTRALINE [Suspect]
     Active Substance: SERTRALINE HYDROCHLORIDE
     Indication: DEPRESSION
     Route: 065

REACTIONS (5)
  - Pyrexia [Recovered/Resolved]
  - Erythema multiforme [Recovered/Resolved]
  - Mouth ulceration [Recovered/Resolved]
  - Papule [Recovered/Resolved]
  - Rash [Recovered/Resolved]
